FAERS Safety Report 16275963 (Version 1)
Quarter: 2019Q2

REPORT INFORMATION
  Report Type: Spontaneous
  Country: US (occurrence: US)
  Receive Date: 20190506
  Receipt Date: 20190506
  Transmission Date: 20190711
  Serious: No
  Sender: FDA-Public Use
  Company Number: US-SA-2019SA119935

PATIENT

DRUGS (1)
  1. FERRLECIT [Suspect]
     Active Substance: SODIUM FERRIC GLUCONATE COMPLEX

REACTIONS (5)
  - Abdominal pain upper [Unknown]
  - Laryngospasm [Unknown]
  - Vomiting [Unknown]
  - Rash [Unknown]
  - Nausea [Unknown]
